FAERS Safety Report 21822935 (Version 1)
Quarter: 2023Q1

REPORT INFORMATION
  Report Type: Spontaneous
  Country: US (occurrence: US)
  Receive Date: 20230105
  Receipt Date: 20230105
  Transmission Date: 20230417
  Serious: Yes (Hospitalization)
  Sender: FDA-Public Use
  Company Number: US-MYLANLABS-2022M1141451

PATIENT
  Age: 58 Year
  Sex: Male

DRUGS (1)
  1. OLANZAPINE [Suspect]
     Active Substance: OLANZAPINE
     Indication: Major depression
     Dosage: 7.5 MILLIGRAM
     Route: 065

REACTIONS (7)
  - Intentional product misuse [Recovering/Resolving]
  - Cerebrovascular accident [Recovered/Resolved]
  - Nervous system disorder [Recovered/Resolved]
  - Sinus tachycardia [Unknown]
  - Anticholinergic syndrome [Recovering/Resolving]
  - Toxicity to various agents [Recovering/Resolving]
  - Intentional overdose [Recovering/Resolving]
